FAERS Safety Report 24686516 (Version 1)
Quarter: 2024Q4

REPORT INFORMATION
  Report Type: Spontaneous
  Country: SI (occurrence: SI)
  Receive Date: 20241202
  Receipt Date: 20241202
  Transmission Date: 20250114
  Serious: Yes (Other)
  Sender: MERCK
  Company Number: SI-009507513-2412SVN000143

PATIENT
  Age: 63 Year
  Sex: Female

DRUGS (2)
  1. PEMBROLIZUMAB [Suspect]
     Active Substance: PEMBROLIZUMAB
     Indication: Endometrial cancer metastatic
     Dosage: UNK
     Dates: start: 202307
  2. LENVATINIB MESYLATE [Suspect]
     Active Substance: LENVATINIB MESYLATE
     Indication: Endometrial cancer metastatic
     Route: 048
     Dates: start: 202307

REACTIONS (4)
  - Urogenital fistula [Unknown]
  - Malignant neoplasm progression [Unknown]
  - Abscess [Recovered/Resolved]
  - Urinary bladder suspension [Unknown]

NARRATIVE: CASE EVENT DATE: 20230101
